FAERS Safety Report 11741887 (Version 1)
Quarter: 2015Q4

REPORT INFORMATION
  Report Type: Spontaneous
  Country: US (occurrence: None)
  Receive Date: 20151113
  Receipt Date: 20151113
  Transmission Date: 20160304
  Serious: Yes (Other)
  Sender: FDA-Public Use
  Company Number: None

PATIENT
  Age: 45 Year

DRUGS (13)
  1. LIPITOR [Suspect]
     Active Substance: ATORVASTATIN CALCIUM
     Indication: BLOOD CHOLESTEROL INCREASED
     Dosage: 1 TAB AT BEDTIME
     Route: 048
     Dates: start: 20150904, end: 20150908
  2. METFORMIN [Concomitant]
     Active Substance: METFORMIN HYDROCHLORIDE
  3. ASA [Concomitant]
     Active Substance: ASPIRIN
  4. CENTRUM WOMEN UNDER 50 [Concomitant]
     Active Substance: VITAMINS
  5. ACETAMINOPHEN. [Concomitant]
     Active Substance: ACETAMINOPHEN
  6. LISINOPRIL. [Concomitant]
     Active Substance: LISINOPRIL
  7. VICTOZA [Concomitant]
     Active Substance: LIRAGLUTIDE
  8. LUNESTA [Concomitant]
     Active Substance: ESZOPICLONE
  9. PRECOSE [Concomitant]
     Active Substance: ACARBOSE
  10. LO ESTREL [Concomitant]
  11. CALCIUM CITRATE [Concomitant]
     Active Substance: CALCIUM CITRATE
  12. IBUPROFEN. [Concomitant]
     Active Substance: IBUPROFEN
  13. PRAVASTATIN [Concomitant]
     Active Substance: PRAVASTATIN\PRAVASTATIN SODIUM

REACTIONS (2)
  - Influenza [None]
  - Vision blurred [None]

NARRATIVE: CASE EVENT DATE: 20150904
